FAERS Safety Report 9715637 (Version 2)
Quarter: 2014Q2

REPORT INFORMATION
  Report Type: Spontaneous
  Country: US (occurrence: US)
  Receive Date: 20131127
  Receipt Date: 20140421
  Transmission Date: 20141212
  Serious: No
  Sender: FDA-Public Use
  Company Number: US-JNJFOC-20131107134

PATIENT
  Sex: Female
  Weight: 90.72 kg

DRUGS (13)
  1. DURAGESIC [Suspect]
     Indication: PAIN
     Route: 062
  2. DURAGESIC [Suspect]
     Indication: PAIN
     Route: 062
     Dates: start: 2010
  3. OXYCODONE [Concomitant]
     Indication: BREAKTHROUGH PAIN
     Dosage: AS NEEDED.
     Route: 048
     Dates: start: 2006
  4. ROBAXIN [Concomitant]
     Indication: MUSCLE SPASMS
     Route: 048
     Dates: start: 2006
  5. IBUPROFEN [Concomitant]
     Dosage: AS NEEDED.
     Route: 048
     Dates: start: 2006
  6. PRENATAL VITIAMINS [Concomitant]
     Route: 048
     Dates: start: 2006
  7. COLACE [Concomitant]
     Indication: GASTROINTESTINAL DISORDER
     Route: 048
     Dates: start: 2006
  8. CYMBALTA [Concomitant]
     Route: 048
  9. ASPIRIN [Concomitant]
     Route: 048
     Dates: start: 2010
  10. SIMVASTATIN [Concomitant]
     Indication: BLOOD CHOLESTEROL
     Route: 048
     Dates: start: 2010
  11. METOPROLOL [Concomitant]
     Indication: CARDIAC DISORDER
     Route: 048
     Dates: start: 2010
  12. ZOCOR [Concomitant]
     Route: 065
  13. DILAUDID [Concomitant]
     Indication: BREAKTHROUGH PAIN
     Route: 065

REACTIONS (7)
  - Therapeutic response decreased [Unknown]
  - Wrong technique in drug usage process [Not Recovered/Not Resolved]
  - Product quality issue [Unknown]
  - Product quality issue [Unknown]
  - Product quality issue [Unknown]
  - Product adhesion issue [Not Recovered/Not Resolved]
  - Wrong technique in drug usage process [Not Recovered/Not Resolved]
